FAERS Safety Report 6838690-6 (Version None)
Quarter: 2010Q3

REPORT INFORMATION
  Report Type: 
  Country: None (occurrence: None)
  Receive Date: 20100713
  Receipt Date: 20070614
  Transmission Date: 20110219
  Serious: No
  Sender: FDA-Public Use
  Company Number: US-PFIZER INC-2007038408

PATIENT
  Sex: Female
  Weight: 81.818 kg

DRUGS (5)
  1. CHANTIX [Suspect]
     Indication: SMOKING CESSATION THERAPY
     Route: 048
     Dates: start: 20070416
  2. LASIX [Concomitant]
  3. ASPIRIN [Concomitant]
  4. TYLENOL PM [Suspect]
  5. ESTROGENS [Suspect]

REACTIONS (1)
  - DRUG INEFFECTIVE [None]
